FAERS Safety Report 4707592-3 (Version None)
Quarter: 2005Q3

REPORT INFORMATION
  Report Type: 
  Country: None (occurrence: None)
  Receive Date: 20050705
  Receipt Date: 20050621
  Transmission Date: 20060218
  Serious: Yes (Other)
  Sender: FDA-Public Use
  Company Number: WAES 0506USA03358

PATIENT

DRUGS (4)
  1. DECADRON [Suspect]
     Indication: PROSTATE CANCER
     Dosage: 0.5-1 MG
  2. CISPLATIN [Suspect]
     Indication: PROSTATE CANCER
     Dosage: 5 MG/BODY
  3. DIETHYLSTILBESTROL [Suspect]
     Indication: PROSTATE CANCER
     Dosage: 300-450 MG
  4. [THERAPY UNSPECIFIED] [Suspect]
     Indication: PROSTATE CANCER
     Dosage: 300-450 MG

REACTIONS (1)
  - PULMONARY EMBOLISM [None]
